FAERS Safety Report 7129496-1 (Version None)
Quarter: 2010Q4

REPORT INFORMATION
  Report Type: 
  Country: None (occurrence: None)
  Receive Date: 20101116
  Receipt Date: 20101103
  Transmission Date: 20110411
  Serious: Yes (Other)
  Sender: FDA-Public Use
  Company Number: GB-ACCORD-006587

PATIENT
  Sex: Male

DRUGS (1)
  1. TOPIRAMATE [Suspect]
     Indication: EPILEPSY
     Dosage: 50.00-MG-2.00PER-1.0DAYS  ORAL
     Route: 048

REACTIONS (2)
  - DRUG DISPENSING ERROR [None]
  - PRODUCT COMMINGLING [None]
